FAERS Safety Report 6767047-1 (Version None)
Quarter: 2010Q2

REPORT INFORMATION
  Report Type: 
  Country: None (occurrence: None)
  Receive Date: 20100611
  Receipt Date: 20100604
  Transmission Date: 20101027
  Serious: Yes (Other)
  Sender: FDA-Public Use
  Company Number: FR-AMGEN-QUU417217

PATIENT
  Age: 53 Year
  Sex: Female

DRUGS (5)
  1. ENBREL [Suspect]
     Indication: PSORIATIC ARTHROPATHY
     Dosage: UNKNOWN
     Route: 058
     Dates: start: 20091008, end: 20091008
  2. ENBREL [Suspect]
     Indication: PSORIASIS
  3. HUMIRA [Suspect]
     Indication: PSORIATIC ARTHROPATHY
     Dosage: UNKNOWN
     Dates: start: 20090629, end: 20091005
  4. HUMIRA [Suspect]
     Indication: PSORIASIS
  5. NOVATREX [Concomitant]
     Dosage: UNKNOWN
     Route: 048
     Dates: end: 20100501

REACTIONS (2)
  - DEMYELINATION [None]
  - POLYNEUROPATHY [None]
